FAERS Safety Report 23389780 (Version 2)
Quarter: 2024Q1

REPORT INFORMATION
  Report Type: Report from Study
  Country: IE (occurrence: IE)
  Receive Date: 20240111
  Receipt Date: 20240116
  Transmission Date: 20240410
  Serious: Yes (Other)
  Sender: FDA-Public Use
  Company Number: IE-Merck Healthcare KGaA-2024001035

PATIENT
  Age: 57 Year
  Sex: Female

DRUGS (3)
  1. MAVENCLAD [Suspect]
     Active Substance: CLADRIBINE
     Indication: Relapsing multiple sclerosis
     Dosage: YEAR ONE WEEK ONE THERAPY: TWO DOSAGE FORM ON DAY 1 AND ONE DOSAGE FORM ON DAYS 2 TO 5.
     Route: 048
     Dates: start: 20221215
  2. MAVENCLAD [Suspect]
     Active Substance: CLADRIBINE
     Dosage: YEAR ONE WEEK FIVE THERAPY: TWO DOSAGE FORM ON DAY 1 AND ONE DOSAGE FORM ON DAYS 2 TO 5.
     Route: 048
     Dates: start: 20230112
  3. MAVENCLAD [Suspect]
     Active Substance: CLADRIBINE
     Dosage: YEAR TWO WEEK ONE THERAPY: TWO DOSAGE FORM ON DAY 1 AND ONE DOSAGE FORM ON DAYS 2 TO 5.
     Route: 048
     Dates: start: 20231211

REACTIONS (1)
  - Lower respiratory tract infection [Recovering/Resolving]

NARRATIVE: CASE EVENT DATE: 20240104
